FAERS Safety Report 23167208 (Version 2)
Quarter: 2023Q4

REPORT INFORMATION
  Report Type: Spontaneous
  Country: CN (occurrence: CN)
  Receive Date: 20231109
  Receipt Date: 20231117
  Transmission Date: 20240110
  Serious: Yes (Hospitalization, Other)
  Sender: FDA-Public Use
  Company Number: CN-SA-2023SA338775

PATIENT
  Age: 74 Year
  Sex: Female

DRUGS (27)
  1. CLOPIDOGREL BISULFATE [Interacting]
     Active Substance: CLOPIDOGREL BISULFATE
     Indication: Cerebral infarction
     Dosage: 75 MG, QD
     Dates: start: 20230223, end: 20230421
  2. ESCITALOPRAM OXALATE [Interacting]
     Active Substance: ESCITALOPRAM OXALATE
     Indication: Depression
     Dosage: 5 MG, QD
     Dates: start: 20230227, end: 20230415
  3. CLOZAPINE [Concomitant]
     Active Substance: CLOZAPINE
     Indication: Schizophrenia
     Dosage: 275 MG, QD
     Dates: start: 20230223, end: 20230413
  4. CLOZAPINE [Concomitant]
     Active Substance: CLOZAPINE
     Dosage: 300 MG, QD
     Dates: start: 200707, end: 20150924
  5. CLOZAPINE [Concomitant]
     Active Substance: CLOZAPINE
     Dosage: UNK UNK, QD
     Dates: start: 20151024, end: 202207
  6. CLOZAPINE [Concomitant]
     Active Substance: CLOZAPINE
     Dosage: 250 MG, QD
     Dates: start: 202207, end: 20230223
  7. CLOZAPINE [Concomitant]
     Active Substance: CLOZAPINE
     Dosage: 25 MG, QD
     Dates: start: 20230417
  8. CLOZAPINE [Concomitant]
     Active Substance: CLOZAPINE
     Dosage: 50 MG, QD
     Dates: start: 20230418
  9. RISPERIDONE [Concomitant]
     Active Substance: RISPERIDONE
     Indication: Schizophrenia
     Dosage: 3 MG, QD
     Dates: start: 20230223, end: 20230227
  10. RISPERIDONE [Concomitant]
     Active Substance: RISPERIDONE
     Dosage: 3 MG, QD
     Dates: start: 202207
  11. ROSUVASTATIN [Concomitant]
     Active Substance: ROSUVASTATIN
     Indication: Hyperlipidaemia
     Dosage: 10 MG
     Dates: start: 20230223
  12. ESTAZOLAM [Concomitant]
     Active Substance: ESTAZOLAM
     Indication: Insomnia
     Dosage: 1 MG
     Dates: start: 20230223
  13. VALSARTAN [Concomitant]
     Active Substance: VALSARTAN
     Indication: Hypertension
     Dosage: 80 MG, QD
     Dates: start: 20230227
  14. POTASSIUM CHLORIDE [Concomitant]
     Active Substance: POTASSIUM CHLORIDE
     Indication: Hypokalaemia
     Dosage: 1 G, BID
     Dates: start: 20230301, end: 20230310
  15. POTASSIUM CHLORIDE [Concomitant]
     Active Substance: POTASSIUM CHLORIDE
     Dosage: 1 G
     Dates: start: 20230322, end: 20230331
  16. POTASSIUM CHLORIDE [Concomitant]
     Active Substance: POTASSIUM CHLORIDE
     Dosage: 1 G
     Dates: start: 20230412, end: 20230413
  17. POTASSIUM CHLORIDE [Concomitant]
     Active Substance: POTASSIUM CHLORIDE
     Dosage: 15 ML, INJECTION
     Route: 042
     Dates: start: 20230413
  18. POTASSIUM CHLORIDE [Concomitant]
     Active Substance: POTASSIUM CHLORIDE
     Dosage: 15 ML, INJECTION
     Route: 042
     Dates: start: 20230417, end: 20230417
  19. CAPTOPRIL [Concomitant]
     Active Substance: CAPTOPRIL
     Indication: Hypertension
     Dosage: 25 MG
     Dates: start: 20230301
  20. CAPTOPRIL [Concomitant]
     Active Substance: CAPTOPRIL
     Dosage: 25 MG
     Dates: start: 20230413
  21. CAPTOPRIL [Concomitant]
     Active Substance: CAPTOPRIL
     Dosage: 25 MG
     Dates: start: 20230416
  22. CAPTOPRIL [Concomitant]
     Active Substance: CAPTOPRIL
     Dosage: 25 MG
     Dates: start: 20230415
  23. METOPROLOL [Concomitant]
     Active Substance: METOPROLOL
     Dosage: 25 MG
     Dates: start: 20230414
  24. PIPERACILLIN AND TAZOBACTAM [Concomitant]
     Active Substance: PIPERACILLIN SODIUM\TAZOBACTAM SODIUM
     Indication: Cough
     Dosage: 3.375 UNK, Q8H
     Dates: start: 20230420
  25. FUROSEMIDE [Concomitant]
     Active Substance: FUROSEMIDE
     Dosage: 20 MG
     Dates: start: 20230420
  26. ACETAMINOPHEN [Concomitant]
     Active Substance: ACETAMINOPHEN
     Dosage: 0.5 MG
     Dates: start: 20230421
  27. AMBROXOL [Concomitant]
     Active Substance: AMBROXOL
     Dosage: UNK UNK, BID
     Dates: start: 20230421

REACTIONS (14)
  - Serotonin syndrome [Recovering/Resolving]
  - Feeling jittery [Recovering/Resolving]
  - Drug interaction [Recovering/Resolving]
  - Insomnia [Recovering/Resolving]
  - Agitation [Recovering/Resolving]
  - Tachypnoea [Recovering/Resolving]
  - Tremor [Recovering/Resolving]
  - Confusional state [Recovering/Resolving]
  - Negativism [Recovering/Resolving]
  - Hyperhidrosis [Recovering/Resolving]
  - Muscle tightness [Recovering/Resolving]
  - Myoclonus [Recovering/Resolving]
  - Hyperreflexia [Recovering/Resolving]
  - Laziness [Recovering/Resolving]

NARRATIVE: CASE EVENT DATE: 20230413
